FAERS Safety Report 11186118 (Version 6)
Quarter: 2016Q1

REPORT INFORMATION
  Report Type: Report from Study
  Country: PA (occurrence: PA)
  Receive Date: 20150612
  Receipt Date: 20160225
  Transmission Date: 20160525
  Serious: Yes (Other)
  Sender: FDA-Public Use
  Company Number: PHHY2015PA031533

PATIENT
  Sex: Female

DRUGS (1)
  1. EXJADE [Suspect]
     Active Substance: DEFERASIROX
     Indication: IRON OVERLOAD
     Dosage: 2 DF, QD
     Route: 065

REACTIONS (17)
  - Cerebrovascular accident [Unknown]
  - Pyrexia [Unknown]
  - Abdominal pain upper [Unknown]
  - Urinary tract infection [Recovering/Resolving]
  - Malaise [Unknown]
  - Asthenia [Unknown]
  - Nausea [Unknown]
  - Vomiting [Unknown]
  - Wrong technique in product usage process [Unknown]
  - Abdominal discomfort [Unknown]
  - Syncope [Unknown]
  - Haemoglobin decreased [Unknown]
  - Blood iron increased [Unknown]
  - Constipation [Unknown]
  - Blood urine [Unknown]
  - Diarrhoea [Unknown]
  - Serum ferritin increased [Unknown]
